FAERS Safety Report 18210689 (Version 1)
Quarter: 2020Q3

REPORT INFORMATION
  Report Type: Spontaneous
  Country: US (occurrence: US)
  Receive Date: 20200829
  Receipt Date: 20200829
  Transmission Date: 20201103
  Serious: No
  Sender: FDA-Public Use
  Company Number: NVSC2020US238745

PATIENT
  Age: 69 Year
  Sex: Female

DRUGS (1)
  1. RECLAST [Suspect]
     Active Substance: ZOLEDRONIC ACID
     Indication: OSTEOPOROSIS
     Dosage: UNK
     Route: 041
     Dates: start: 20200820

REACTIONS (4)
  - Eye inflammation [Unknown]
  - Eye pain [Unknown]
  - Headache [Unknown]
  - Iritis [Unknown]

NARRATIVE: CASE EVENT DATE: 20200821
